FAERS Safety Report 4714980-8 (Version None)
Quarter: 2005Q3

REPORT INFORMATION
  Report Type: 
  Country: None (occurrence: None)
  Receive Date: 20050715
  Receipt Date: 20050630
  Transmission Date: 20060218
  Serious: Yes (Other)
  Sender: FDA-Public Use
  Company Number: GB-BOEHRINGER INGELHEIM PHARMACEUTICALS, INC.-2005-UK-01195UK

PATIENT
  Age: 82 Year
  Sex: Female

DRUGS (7)
  1. ATROVENT [Suspect]
     Indication: CHRONIC OBSTRUCTIVE PULMONARY DISEASE
     Dosage: 2 PUFFS FOUR TIMES DAILY
     Route: 055
     Dates: start: 20040907, end: 20050520
  2. TEMAZEPAM [Concomitant]
     Dosage: 20 MG ONCE AT NIGHT
     Route: 048
  3. ADIZEM [Concomitant]
     Dosage: 120 MG ONCE DAILY
     Route: 048
  4. DIGOXIN [Concomitant]
     Route: 048
  5. PAROXETINE HCL [Concomitant]
     Route: 048
  6. TERBUTALINE [Concomitant]
     Dosage: 500 MCG 2 PUFFS AS REQUIRED
     Route: 055
  7. BUDESONIDE [Concomitant]
     Dosage: 400 MCG 2 PUFFS TWICE DAILY
     Route: 055

REACTIONS (1)
  - PHOTOSENSITIVITY REACTION [None]
